FAERS Safety Report 7872969 (Version 2)
Quarter: 2013Q2

REPORT INFORMATION
  Report Type: Spontaneous
  Country: US (occurrence: US)
  Receive Date: 20110325
  Receipt Date: 20130401
  Transmission Date: 20140414
  Serious: Yes (Hospitalization, Other)
  Sender: FDA-Public Use
  Company Number: US-US-EMD SERONO, INC.-230419K07USA

PATIENT
  Sex: Female
  Weight: 55 kg

DRUGS (2)
  1. REBIF [Suspect]
     Indication: MULTIPLE SCLEROSIS
     Route: 058
     Dates: start: 20050511, end: 200701
  2. REBIF [Suspect]
     Route: 058
     Dates: start: 20070215

REACTIONS (6)
  - Pituitary tumour [Recovering/Resolving]
  - Renal failure [Recovered/Resolved]
  - Grand mal convulsion [Recovering/Resolving]
  - Cognitive disorder [Not Recovered/Not Resolved]
  - Pain [Not Recovered/Not Resolved]
  - Headache [Not Recovered/Not Resolved]
